FAERS Safety Report 8142183-6 (Version None)
Quarter: 2012Q1

REPORT INFORMATION
  Report Type: 
  Country: None (occurrence: None)
  Receive Date: 20120103
  Receipt Date: 20110906
  Transmission Date: 20120608
  Serious: No
  Sender: FDA-Public Use
  Company Number: AE-2011-001330

PATIENT
  Age: 55 Year
  Sex: Female
  Weight: 76.2043 kg

DRUGS (6)
  1. BENZEPRIL (BENAZEPRIL) [Concomitant]
  2. HUMALOG INSULIN (INSULIN LISPRO) [Concomitant]
  3. INCIVEK [Suspect]
     Dosage: 2250 MG (750 MG,1 IN 8 HR),ORAL
     Route: 048
     Dates: start: 20110902
  4. RIBAVIRIN [Concomitant]
  5. VITAMIN D [Concomitant]
  6. PEGASYS [Concomitant]

REACTIONS (2)
  - VOMITING [None]
  - NAUSEA [None]
